FAERS Safety Report 20961835 (Version 1)
Quarter: 2022Q2

REPORT INFORMATION
  Report Type: Spontaneous
  Country: US (occurrence: US)
  Receive Date: 20220615
  Receipt Date: 20220615
  Transmission Date: 20220721
  Serious: No
  Sender: FDA-Public Use
  Company Number: US-drreddys-SPO/USA/22/0150888

PATIENT
  Age: 17 Year
  Sex: Female

DRUGS (1)
  1. ZENATANE [Suspect]
     Active Substance: ISOTRETINOIN
     Indication: Product used for unknown indication
     Dosage: RMA ISSUE DATE: 25 JANUARY 2022 11:58:28 AM, 25 JANUARY 2022 12:19:08 PM, 11 MARCH 2022 03:22:52 PM,

REACTIONS (1)
  - Treatment noncompliance [Unknown]
